FAERS Safety Report 12825071 (Version 2)
Quarter: 2016Q4

REPORT INFORMATION
  Report Type: Spontaneous
  Country: JP (occurrence: JP)
  Receive Date: 20161007
  Receipt Date: 20161028
  Transmission Date: 20170207
  Serious: Yes (Death, Other)
  Sender: FDA-Public Use
  Company Number: JP-ABBVIE-16P-087-1747645-00

PATIENT
  Age: 88 Year
  Sex: Male

DRUGS (11)
  1. LEUPLIN SR [Suspect]
     Active Substance: LEUPROLIDE ACETATE
     Indication: PROSTATE CANCER
     Dosage: 11.25 MG, Q3MONTHS
     Route: 058
     Dates: start: 20150930, end: 20160330
  2. AMOBAN [Concomitant]
     Active Substance: ZOPICLONE
     Indication: PRODUCT USED FOR UNKNOWN INDICATION
     Dosage: 7.5 MG, QD
     Route: 048
     Dates: start: 20150708, end: 20160413
  3. EURODIN [Concomitant]
     Active Substance: ESTAZOLAM
     Indication: PRODUCT USED FOR UNKNOWN INDICATION
     Dosage: 1 MG, QD
     Route: 048
     Dates: start: 20150708, end: 20160413
  4. OXYCONTIN [Concomitant]
     Active Substance: OXYCODONE HYDROCHLORIDE
     Indication: PRODUCT USED FOR UNKNOWN INDICATION
     Dosage: 5 MG, BID
     Route: 048
     Dates: start: 20150708, end: 20151214
  5. DECADRON [Concomitant]
     Active Substance: DEXAMETHASONE
     Indication: PRODUCT USED FOR UNKNOWN INDICATION
     Dosage: 0.5 MG, TID
     Route: 048
     Dates: start: 20150708, end: 20160413
  6. ALOSENN [Concomitant]
     Active Substance: SENNA LEAF
     Indication: PRODUCT USED FOR UNKNOWN INDICATION
     Dosage: 0.5 G, QD
     Route: 048
     Dates: start: 20150708, end: 20160413
  7. OXYCONTIN [Concomitant]
     Active Substance: OXYCODONE HYDROCHLORIDE
     Dosage: 10 MG, BID
     Route: 048
     Dates: start: 20151215, end: 20160413
  8. MAGMITT [Concomitant]
     Active Substance: MAGNESIUM OXIDE
     Indication: PRODUCT USED FOR UNKNOWN INDICATION
     Dosage: 330 MG, TID
     Route: 048
     Dates: start: 20150708, end: 20160413
  9. AMLODIN [Concomitant]
     Active Substance: AMLODIPINE BESYLATE
     Indication: PRODUCT USED FOR UNKNOWN INDICATION
     Dosage: 5 MG, QD
     Route: 048
     Dates: start: 20150708, end: 20160413
  10. LAC-B GRANULAR POWDER N [Concomitant]
     Indication: PRODUCT USED FOR UNKNOWN INDICATION
     Dosage: 1 G, TID
     Route: 048
     Dates: start: 20150708, end: 20160413
  11. MUCOSTA [Concomitant]
     Active Substance: REBAMIPIDE
     Indication: PRODUCT USED FOR UNKNOWN INDICATION
     Dosage: 100 MG, TID
     Route: 048
     Dates: start: 20150708, end: 20160413

REACTIONS (1)
  - Prostate cancer [Fatal]

NARRATIVE: CASE EVENT DATE: 20160430
